FAERS Safety Report 24591131 (Version 1)
Quarter: 2024Q4

REPORT INFORMATION
  Report Type: Spontaneous
  Country: US (occurrence: US)
  Receive Date: 20241107
  Receipt Date: 20241107
  Transmission Date: 20250114
  Serious: Yes (Hospitalization, Other)
  Sender: SANOFI AVENTIS
  Company Number: US-SA-2024SA315545

PATIENT
  Age: 75 Year
  Sex: Male

DRUGS (1)
  1. DUPIXENT [Suspect]
     Active Substance: DUPILUMAB
     Indication: Dermatitis atopic
     Dosage: 300 MG, QOW
     Route: 058

REACTIONS (7)
  - Urinary retention [Unknown]
  - Dehydration [Unknown]
  - Diarrhoea [Unknown]
  - Decreased appetite [Recovering/Resolving]
  - Psoriasis [Unknown]
  - Dry skin [Unknown]
  - Arthralgia [Unknown]

NARRATIVE: CASE EVENT DATE: 20240801
